FAERS Safety Report 4425583-7 (Version None)
Quarter: 2004Q3

REPORT INFORMATION
  Report Type: 
  Country: None (occurrence: None)
  Receive Date: 20040810
  Receipt Date: 20040727
  Transmission Date: 20050211
  Serious: Yes (Hospitalization)
  Sender: FDA-Public Use
  Company Number: FABR-10696

PATIENT
  Age: 38 Year
  Sex: Male
  Weight: 36.2878 kg

DRUGS (4)
  1. FABRAZYME [Suspect]
     Indication: FABRY'S DISEASE
     Dosage: 1 MG/KG Q2WKS IV
     Route: 042
     Dates: start: 20040723
  2. TYLENOL [Concomitant]
  3. BENADRYL [Concomitant]
  4. LASIX [Concomitant]

REACTIONS (3)
  - DIARRHOEA [None]
  - GOUT [None]
  - PYREXIA [None]
